FAERS Safety Report 8187428-1 (Version None)
Quarter: 2012Q1

REPORT INFORMATION
  Report Type: 
  Country: None (occurrence: None)
  Receive Date: 20120302
  Receipt Date: 20120222
  Transmission Date: 20120608
  Serious: Yes (Death)
  Sender: FDA-Public Use
  Company Number: US-007815

PATIENT
  Age: 59 Year
  Sex: Male
  Weight: 48.9885 kg

DRUGS (5)
  1. FIRMAGON [Suspect]
     Indication: PROSTATE CANCER METASTATIC
     Dosage: (240 MG 1X SUBCUTANEOUS)
     Route: 058
     Dates: start: 20120103, end: 20120103
  2. VITAMIN D [Concomitant]
  3. DILAUDID [Concomitant]
  4. FENTANYL [Concomitant]
  5. METHOCARBAMOL [Concomitant]

REACTIONS (4)
  - PAIN [None]
  - FEELING ABNORMAL [None]
  - REFUSAL OF TREATMENT BY PATIENT [None]
  - JAUNDICE [None]
